FAERS Safety Report 21392580 (Version 1)
Quarter: 2022Q3

REPORT INFORMATION
  Report Type: Spontaneous
  Country: CN (occurrence: CN)
  Receive Date: 20220929
  Receipt Date: 20220929
  Transmission Date: 20221027
  Serious: Yes (Other)
  Sender: FDA-Public Use
  Company Number: None

PATIENT
  Age: 53 Year
  Sex: Female
  Weight: 60 kg

DRUGS (6)
  1. CYCLOPHOSPHAMIDE [Suspect]
     Active Substance: CYCLOPHOSPHAMIDE
     Indication: Breast cancer female
     Dosage: AT 11:18, 0.9 G, QD, DILUTED WITH 0.9% SODIUM CHLORIDE INJECTION 50 ML
     Route: 041
     Dates: start: 20220903, end: 20220903
  2. SODIUM CHLORIDE [Suspect]
     Active Substance: SODIUM CHLORIDE
     Indication: Medication dilution
     Dosage: 50 ML, QD, DILUTED WITH CYCLOPHOSPHAMIDE INJECTION 0.9 G
     Route: 041
     Dates: start: 20220903, end: 20220903
  3. SODIUM CHLORIDE [Suspect]
     Active Substance: SODIUM CHLORIDE
     Dosage: 250 ML, QD, DILUTED WITH DOCETAXEL INJECTION 110 MG
     Route: 041
     Dates: start: 20220903, end: 20220903
  4. SODIUM CHLORIDE [Suspect]
     Active Substance: SODIUM CHLORIDE
     Dosage: 250 ML, QD, DILUTED WITH TRASTUZUMAB INJECTION 420 MG
     Route: 041
     Dates: start: 20220902, end: 20220902
  5. DOCETAXEL [Suspect]
     Active Substance: DOCETAXEL
     Indication: Breast cancer female
     Dosage: AFTER 11:51, 110 MG, QD, DILUTED WITH 0.9% SODIUM CHLORIDE INJECTION 250 ML
     Route: 041
     Dates: start: 20220903, end: 20220903
  6. TRASTUZUMAB [Suspect]
     Active Substance: TRASTUZUMAB
     Indication: Breast cancer female
     Dosage: AT 09:12, 420 MG, QD, DILUTED WITH 0.9% SODIUM CHLORIDE INJECTION 250 ML
     Route: 041
     Dates: start: 20220902, end: 20220902

REACTIONS (3)
  - White blood cell count decreased [Recovered/Resolved]
  - Asthenia [Recovered/Resolved]
  - Fatigue [Unknown]

NARRATIVE: CASE EVENT DATE: 20220910
